FAERS Safety Report 10100417 (Version 1)
Quarter: 2014Q2

REPORT INFORMATION
  Report Type: Spontaneous
  Country: AU (occurrence: AU)
  Receive Date: 20140423
  Receipt Date: 20140423
  Transmission Date: 20141212
  Serious: Yes (Hospitalization, Other)
  Sender: FDA-Public Use
  Company Number: AU-BRISTOL-MYERS SQUIBB COMPANY-20632626

PATIENT
  Sex: 0

DRUGS (1)
  1. DASATINIB [Suspect]

REACTIONS (2)
  - Psoriasis [Unknown]
  - Pulmonary hypertension [Unknown]
